FAERS Safety Report 9664357 (Version 2)
Quarter: 2016Q1

REPORT INFORMATION
  Report Type: Other
  Country: CA (occurrence: CA)
  Receive Date: 20131101
  Receipt Date: 20160223
  Transmission Date: 20160526
  Serious: Yes (Hospitalization, Other)
  Sender: FDA-Public Use
  Company Number: CA-ACTELION-A-NJ2013-90299

PATIENT
  Age: 14 Year
  Sex: Male

DRUGS (5)
  1. ZAVESCA [Suspect]
     Active Substance: MIGLUSTAT
     Dosage: 400 MG, QD
     Route: 048
  2. CEREZYME [Concomitant]
     Active Substance: IMIGLUCERASE
     Dosage: 100 UNITS/KG, UNK
     Route: 042
  3. ZAVESCA [Suspect]
     Active Substance: MIGLUSTAT
     Indication: GAUCHER^S DISEASE
     Dosage: 400 MG, QD
     Route: 048
     Dates: end: 201308
  4. CEREZYME [Concomitant]
     Active Substance: IMIGLUCERASE
     Dosage: 30 UNITS/KG, EVERY 3 WEEKS
     Route: 042
  5. CEREZYME [Concomitant]
     Active Substance: IMIGLUCERASE
     Dosage: 100 UNITS/KG, UNK
     Route: 042

REACTIONS (12)
  - Lymphangiectasia intestinal [Recovering/Resolving]
  - Hypogammaglobulinaemia [Unknown]
  - Abdominal pain [Recovering/Resolving]
  - Haemoglobin decreased [Recovering/Resolving]
  - Weight decreased [Recovering/Resolving]
  - Diarrhoea [Unknown]
  - Hepatosplenomegaly [Recovering/Resolving]
  - Diarrhoea [Recovering/Resolving]
  - Protein-losing gastroenteropathy [Recovering/Resolving]
  - Platelet count decreased [Recovering/Resolving]
  - Malnutrition [Unknown]
  - Disease progression [Recovering/Resolving]
